FAERS Safety Report 5129052-0 (Version None)
Quarter: 2006Q4

REPORT INFORMATION
  Report Type: 
  Country: None (occurrence: None)
  Receive Date: 20061011
  Receipt Date: 20060619
  Transmission Date: 20070319
  Serious: Yes (Other)
  Sender: FDA-Public Use
  Company Number: 2006052235

PATIENT
  Age: 47 Year
  Sex: Male
  Weight: 88.4514 kg

DRUGS (1)
  1. BEXTRA [Suspect]
     Indication: ILL-DEFINED DISORDER
     Dates: start: 20030101

REACTIONS (6)
  - BURNING SENSATION [None]
  - DRY THROAT [None]
  - DYSPHAGIA [None]
  - FATIGUE [None]
  - POOR QUALITY SLEEP [None]
  - STEVENS-JOHNSON SYNDROME [None]
